FAERS Safety Report 24893045 (Version 1)
Quarter: 2025Q1

REPORT INFORMATION
  Report Type: Spontaneous
  Country: ES (occurrence: ES)
  Receive Date: 20250128
  Receipt Date: 20250128
  Transmission Date: 20250409
  Serious: Yes (Hospitalization, Other)
  Sender: GILEAD
  Company Number: ES-GILEAD-2025-0701348

PATIENT
  Sex: Female

DRUGS (1)
  1. TRODELVY [Suspect]
     Active Substance: SACITUZUMAB GOVITECAN-HZIY
     Indication: Triple negative breast cancer
     Route: 065

REACTIONS (4)
  - Hepatitis acute [Recovering/Resolving]
  - Pyrexia [Recovering/Resolving]
  - Toxicity to various agents [Recovering/Resolving]
  - Asthenia [Recovering/Resolving]
